FAERS Safety Report 14536887 (Version 4)
Quarter: 2018Q2

REPORT INFORMATION
  Report Type: Spontaneous
  Country: US (occurrence: US)
  Receive Date: 20180215
  Receipt Date: 20180601
  Transmission Date: 20180711
  Serious: Yes (Hospitalization, Other)
  Sender: FDA-Public Use
  Company Number: US-PFIZER INC-2018066803

PATIENT
  Age: 66 Year
  Sex: Female
  Weight: 82.54 kg

DRUGS (3)
  1. LETROZOLE. [Concomitant]
     Active Substance: LETROZOLE
     Dosage: UNK
  2. IBRANCE [Suspect]
     Active Substance: PALBOCICLIB
     Indication: BREAST CANCER STAGE IV
     Dosage: 125 MG, DAILY
     Dates: start: 201706
  3. IBRANCE [Suspect]
     Active Substance: PALBOCICLIB
     Dosage: 75 MG, CYCLIC [EVERY OTHER WEEK] [ONE WEEK BY MOUTH THEN ONE WEEK OFF]
     Route: 048
     Dates: start: 201705

REACTIONS (7)
  - Epistaxis [Recovered/Resolved]
  - Sepsis [Recovered/Resolved]
  - Loss of consciousness [Not Recovered/Not Resolved]
  - Platelet count decreased [Not Recovered/Not Resolved]
  - Infection [Recovered/Resolved]
  - Kidney infection [Unknown]
  - Cystitis [Unknown]

NARRATIVE: CASE EVENT DATE: 20170618
